FAERS Safety Report 18051189 (Version 1)
Quarter: 2020Q3

REPORT INFORMATION
  Report Type: Spontaneous
  Country: CN (occurrence: CN)
  Receive Date: 20200721
  Receipt Date: 20200721
  Transmission Date: 20201103
  Serious: Yes (Death, Other)
  Sender: FDA-Public Use
  Company Number: CN-ROCHE-2643653

PATIENT
  Age: 50 Year
  Sex: Male

DRUGS (13)
  1. AVASTIN [Suspect]
     Active Substance: BEVACIZUMAB
     Dosage: 21/NOV/2017, 2/JAN/2018
     Route: 065
     Dates: start: 20171031
  2. OSIMERTINIB. [Concomitant]
     Active Substance: OSIMERTINIB
     Dosage: DOUBLE DOSE
     Dates: start: 20180428
  3. AVASTIN [Suspect]
     Active Substance: BEVACIZUMAB
     Route: 065
     Dates: end: 201903
  4. PACLITAXEL ALBUMIN [Concomitant]
     Active Substance: PACLITAXEL
     Indication: LUNG ADENOCARCINOMA
     Dosage: DAY1,8, 23/JAN/2018, 13/FEB/2018, 6/MAR/2018, 27/MAR/2018
     Dates: start: 20180123
  5. AVASTIN [Suspect]
     Active Substance: BEVACIZUMAB
     Dosage: 13/FEB/2018, 6/MAR/2018, 27/MAR/2018, DAY1
     Route: 065
     Dates: start: 20180123
  6. PEMETREXED DISODIUM [Concomitant]
     Active Substance: PEMETREXED DISODIUM
     Indication: LUNG ADENOCARCINOMA
     Dates: start: 20151208
  7. CISPLATIN. [Concomitant]
     Active Substance: CISPLATIN
     Indication: LUNG ADENOCARCINOMA
     Dosage: DAY1?3, 08/DEC/2015, 6/JAN/2016, 27/JAN/2016, 17/FEB/2016
     Dates: start: 20151208
  8. DOCETAXEL. [Concomitant]
     Active Substance: DOCETAXEL
     Indication: LUNG ADENOCARCINOMA
     Dates: start: 20170510, end: 20171010
  9. OSIMERTINIB. [Concomitant]
     Active Substance: OSIMERTINIB
     Indication: LUNG ADENOCARCINOMA
     Route: 048
     Dates: start: 20180425
  10. PEMETREXED DISODIUM [Concomitant]
     Active Substance: PEMETREXED DISODIUM
     Dosage: 18 CYCLES
     Dates: start: 20160420, end: 20170419
  11. ZOLEDRONIC ACID [Concomitant]
     Active Substance: ZOLEDRONIC ACID
     Indication: LUNG ADENOCARCINOMA
     Dates: start: 20151208
  12. ZOLEDRONIC ACID [Concomitant]
     Active Substance: ZOLEDRONIC ACID
     Dates: start: 20160420, end: 20170419
  13. AVASTIN [Suspect]
     Active Substance: BEVACIZUMAB
     Indication: LUNG ADENOCARCINOMA
     Route: 065
     Dates: start: 20170510, end: 20171010

REACTIONS (16)
  - Cerebral infarction [Fatal]
  - Renal cyst [Unknown]
  - Cerebral ventricle dilatation [Unknown]
  - Proteinuria [Unknown]
  - Vomiting [Unknown]
  - Dizziness [Unknown]
  - Platelet count decreased [Fatal]
  - Pneumonia [Fatal]
  - Arrhythmia [Unknown]
  - Balance disorder [Unknown]
  - Pleural effusion [Unknown]
  - Vision blurred [Unknown]
  - Hepatic cyst [Unknown]
  - Gait disturbance [Unknown]
  - Musculoskeletal discomfort [Unknown]
  - Headache [Unknown]

NARRATIVE: CASE EVENT DATE: 2018
